FAERS Safety Report 16593876 (Version 1)
Quarter: 2019Q3

REPORT INFORMATION
  Report Type: Other
  Country: US (occurrence: US)
  Receive Date: 20190718
  Receipt Date: 20190718
  Transmission Date: 20191004
  Serious: No
  Sender: FDA-Public Use
  Company Number: US-SWEDISH ORPHAN BIOVITRUM-2018US1457

PATIENT
  Sex: Female

DRUGS (2)
  1. STEROID INJECTIONS [Concomitant]
     Active Substance: UNSPECIFIED INGREDIENT
  2. KINERET [Suspect]
     Active Substance: ANAKINRA
     Indication: RHEUMATOID ARTHRITIS
     Dates: start: 20150804

REACTIONS (1)
  - Inflammation [Unknown]
